FAERS Safety Report 5019349-7 (Version None)
Quarter: 2006Q2

REPORT INFORMATION
  Report Type: 
  Country: None (occurrence: None)
  Receive Date: 20060531
  Receipt Date: 20060522
  Transmission Date: 20061013
  Serious: Yes (Other)
  Sender: FDA-Public Use
  Company Number: 200612138GDS

PATIENT
  Age: 19 Year
  Sex: Female

DRUGS (1)
  1. TRASYLOL [Suspect]
     Dosage: SEE IMAGE

REACTIONS (13)
  - ABDOMINAL PAIN [None]
  - ACTIVATED PARTIAL THROMBOPLASTIN TIME PROLONGED [None]
  - AGITATION [None]
  - ASTHENIA [None]
  - DRUG EXPOSURE DURING PREGNANCY [None]
  - HEADACHE [None]
  - HEMIPARESIS [None]
  - INTRA-UTERINE DEATH [None]
  - INTRAVASCULAR HAEMOLYSIS [None]
  - POLYCHROMASIA [None]
  - SOMNOLENCE [None]
  - THROMBOTIC THROMBOCYTOPENIC PURPURA [None]
  - TREMOR [None]
